FAERS Safety Report 19349410 (Version 1)
Quarter: 2021Q2

REPORT INFORMATION
  Report Type: Spontaneous
  Country: US (occurrence: US)
  Receive Date: 20210531
  Receipt Date: 20210531
  Transmission Date: 20210717
  Serious: Yes (Life-Threatening, Other)
  Sender: FDA-Public Use
  Company Number: None

PATIENT
  Age: 59 Year
  Sex: Female
  Weight: 100.6 kg

DRUGS (2)
  1. METHADONE [Suspect]
     Active Substance: METHADONE HYDROCHLORIDE
     Indication: SPINAL OPERATION
     Dosage: ?          OTHER FREQUENCY:ONCE;?
     Route: 040
     Dates: start: 20210524, end: 20210524
  2. MORPHINE EPIDURAL [Concomitant]
     Dates: start: 20210524, end: 20210524

REACTIONS (2)
  - Laryngospasm [None]
  - Respiratory arrest [None]

NARRATIVE: CASE EVENT DATE: 20210524
